FAERS Safety Report 6120651-6 (Version None)
Quarter: 2009Q1

REPORT INFORMATION
  Report Type: 
  Country: None (occurrence: None)
  Receive Date: 20090316
  Receipt Date: 20090311
  Transmission Date: 20090719
  Serious: Yes (Death, Life-Threatening, Hospitalization)
  Sender: FDA-Public Use
  Company Number: GXKR2009DE02937

PATIENT
  Age: 66 Year
  Sex: Female
  Weight: 50 kg

DRUGS (11)
  1. PREDNISOLONE [Suspect]
     Indication: HEPATIC CIRRHOSIS
     Dosage: 10 MG, QD, ORAL; 7.5 NG, QD, ORAL
     Route: 048
     Dates: start: 20080919, end: 20081118
  2. PREDNISOLONE [Suspect]
     Indication: HEPATIC CIRRHOSIS
     Dosage: 10 MG, QD, ORAL; 7.5 NG, QD, ORAL
     Route: 048
     Dates: start: 20081118
  3. ENOXAPARIN SODIUM [Concomitant]
  4. BISOPROLOL FUMARATE [Concomitant]
  5. FOLIC ACID [Concomitant]
  6. METOCLOPRAMIDE [Concomitant]
  7. PALLADONE [Concomitant]
  8. PANTOPRAZOLE SODIUM [Concomitant]
  9. POTASSIUM (POTASSIUM) [Concomitant]
  10. SOCIUM CHLORIDE (SODIUM CHLORIDE) [Concomitant]
  11. TORSEMIDE [Concomitant]

REACTIONS (1)
  - SEPSIS [None]
